FAERS Safety Report 13953536 (Version 1)
Quarter: 2017Q3

REPORT INFORMATION
  Report Type: Spontaneous
  Country: US (occurrence: US)
  Receive Date: 20170911
  Receipt Date: 20170911
  Transmission Date: 20171128
  Serious: No
  Sender: FDA-Public Use
  Company Number: US-PFIZER INC-2017386960

PATIENT
  Age: 78 Year
  Sex: Female
  Weight: 49.9 kg

DRUGS (4)
  1. ZOLPIDEM TARTRATE. [Interacting]
     Active Substance: ZOLPIDEM TARTRATE
     Indication: SLEEP DISORDER
     Dosage: 10MG PILL, BREAKS IT IN 3^S, THINKS SHE IS TAKING 3MG, TAKES OCCASIONALLY IF REALLY NECESSARY.
  2. LYRICA [Suspect]
     Active Substance: PREGABALIN
     Indication: NEUROPATHY PERIPHERAL
     Dosage: 100MG ONCE A DAY BY MOUTH
     Route: 048
     Dates: start: 201708
  3. DOTERRA DEEP BLUE RUB [Concomitant]
     Indication: ARTHRITIS
     Dosage: UNK
  4. LYRICA [Interacting]
     Active Substance: PREGABALIN
     Dosage: 100MG 2 CAPSULES ONCE A DAY

REACTIONS (4)
  - Drug effect incomplete [Unknown]
  - Feeling abnormal [Recovering/Resolving]
  - Extra dose administered [Unknown]
  - Drug interaction [Unknown]

NARRATIVE: CASE EVENT DATE: 201708
